FAERS Safety Report 5224834-9 (Version None)
Quarter: 2007Q1

REPORT INFORMATION
  Report Type: 
  Country: None (occurrence: None)
  Receive Date: 20070131
  Receipt Date: 20070117
  Transmission Date: 20070707
  Serious: Yes (Hospitalization)
  Sender: FDA-Public Use
  Company Number: US-ELI_LILLY_AND_COMPANY-US200701002496

PATIENT
  Age: 80 Year
  Sex: Female
  Weight: 83.9 kg

DRUGS (7)
  1. FORTEO [Suspect]
     Indication: OSTEOPOROSIS
     Dosage: UNK, UNK
     Dates: start: 20051003, end: 20061230
  2. PREDNISONE [Concomitant]
  3. XOPENEX [Concomitant]
  4. PREVACID [Concomitant]
  5. SINGULAIR ^DIECKMANN^ [Concomitant]
  6. ADVAIR DISKUS 100/50 [Concomitant]
  7. COMBIVENT                               /GFR/ [Concomitant]

REACTIONS (5)
  - ASTHENIA [None]
  - CARDIAC PACEMAKER INSERTION [None]
  - DIZZINESS [None]
  - FEELING ABNORMAL [None]
  - OXYGEN SATURATION DECREASED [None]
